FAERS Safety Report 5876118-3 (Version None)
Quarter: 2008Q3

REPORT INFORMATION
  Report Type: 
  Country: None (occurrence: None)
  Receive Date: 20080910
  Receipt Date: 20080714
  Transmission Date: 20090109
  Serious: Yes (Other)
  Sender: FDA-Public Use
  Company Number: US-PURDUE-USA_2008_0034817

PATIENT
  Sex: Male
  Weight: 91 kg

DRUGS (3)
  1. OXYCONTIN [Suspect]
     Indication: BACK PAIN
     Dosage: 80 MG, DAILY
     Dates: start: 20000701, end: 20000901
  2. DIAZEPAM [Concomitant]
     Dosage: 5 MG, UNK
  3. ANTIHYPERTENSIVES [Concomitant]
     Indication: HYPERTENSION

REACTIONS (8)
  - CONSTIPATION [None]
  - DRUG DEPENDENCE [None]
  - HYPERHIDROSIS [None]
  - INSOMNIA [None]
  - LIMB REDUCTION DEFECT [None]
  - MOOD ALTERED [None]
  - NAUSEA [None]
  - TINNITUS [None]
